FAERS Safety Report 13143952 (Version 2)
Quarter: 2017Q1

REPORT INFORMATION
  Report Type: Report from Study
  Country: MX (occurrence: MX)
  Receive Date: 20170124
  Receipt Date: 20170207
  Transmission Date: 20170428
  Serious: Yes (Hospitalization, Other)
  Sender: FDA-Public Use
  Company Number: PHHY2014MX130144

PATIENT
  Age: 74 Year
  Sex: Female

DRUGS (3)
  1. EXFORGE HCT [Suspect]
     Active Substance: AMLODIPINE BESYLATE\HYDROCHLOROTHIAZIDE\VALSARTAN
     Dosage: 0.5 DF (AMLODIPINE 10 MG/ HYDROCHLOROTHIAZIDE 25 MG/ VALSARTAN 320 MG), QD
     Route: 048
     Dates: start: 2015
  2. EXFORGE HCT [Suspect]
     Active Substance: AMLODIPINE BESYLATE\HYDROCHLOROTHIAZIDE\VALSARTAN
     Indication: HYPERTENSION
     Dosage: UNK
     Route: 065
  3. EXFORGE HCT [Suspect]
     Active Substance: AMLODIPINE BESYLATE\HYDROCHLOROTHIAZIDE\VALSARTAN
     Dosage: 0.5 DF (AMLODIPINE 10 MG/ HYDROCHLOROTHIAZIDE 25 MG/ VALSARTAN 320 MG), QD
     Route: 048
     Dates: start: 201409

REACTIONS (11)
  - Diabetes mellitus [Not Recovered/Not Resolved]
  - Memory impairment [Recovered/Resolved]
  - Blood cholesterol abnormal [Not Recovered/Not Resolved]
  - Radius fracture [Recovering/Resolving]
  - Wrong technique in product usage process [Not Recovered/Not Resolved]
  - Hand fracture [Recovering/Resolving]
  - Blood triglycerides increased [Not Recovered/Not Resolved]
  - Drug prescribing error [Not Recovered/Not Resolved]
  - Fall [Recovered/Resolved]
  - Ulna fracture [Recovering/Resolving]
  - Tinnitus [Recovering/Resolving]

NARRATIVE: CASE EVENT DATE: 201409
